FAERS Safety Report 9603068 (Version 1)
Quarter: 2013Q4

REPORT INFORMATION
  Report Type: Spontaneous
  Country: IT (occurrence: IT)
  Receive Date: 20131007
  Receipt Date: 20131007
  Transmission Date: 20140711
  Serious: Yes (Hospitalization)
  Sender: FDA-Public Use
  Company Number: IT-TEVA-434715ISR

PATIENT
  Age: 70 Year
  Sex: Female

DRUGS (3)
  1. ETOPOSITE TEVA [Suspect]
     Indication: LUNG NEOPLASM
     Dosage: 150 MG CYCLICAL, CONCENTRATE FOR SOLUTION FOR INTRAVENOUS INFUSION
     Route: 042
     Dates: start: 20130805, end: 20130912
  2. CISPLATINO HOSPIRA [Suspect]
     Indication: LUNG NEOPLASM
     Dosage: 38 MG CYCLICAL
     Route: 042
     Dates: start: 20130805, end: 20130912
  3. NEULASTA [Concomitant]
     Indication: PROPHYLAXIS
     Dosage: 6 MILLIGRAM DAILY;
     Route: 058
     Dates: start: 20130809, end: 20130809

REACTIONS (3)
  - Asthenia [Recovered/Resolved]
  - Acute respiratory failure [Recovered/Resolved]
  - Febrile neutropenia [Recovered/Resolved]
